FAERS Safety Report 4566019-5 (Version None)
Quarter: 2005Q1

REPORT INFORMATION
  Report Type: 
  Country: None (occurrence: None)
  Receive Date: 20050131
  Receipt Date: 20041005
  Transmission Date: 20050727
  Serious: Yes (Other)
  Sender: FDA-Public Use
  Company Number: US-MERCK-0410USA00810

PATIENT
  Age: 63 Year
  Sex: Female
  Weight: 89 kg

DRUGS (49)
  1. ZANTAC [Concomitant]
     Indication: GASTROOESOPHAGEAL REFLUX DISEASE
     Route: 048
  2. PROTONIX [Concomitant]
     Route: 065
  3. PROZAC [Concomitant]
     Route: 065
  4. ACIPHEX [Concomitant]
     Indication: GASTROOESOPHAGEAL REFLUX DISEASE
     Route: 048
     Dates: start: 20030410
  5. PREVACID [Concomitant]
     Indication: GASTROOESOPHAGEAL REFLUX DISEASE
     Route: 047
     Dates: start: 20030410
  6. CELEBREX [Concomitant]
     Indication: PAIN
     Route: 048
     Dates: start: 20040406
  7. COLCHICINE [Concomitant]
     Indication: GOUT
     Route: 048
     Dates: start: 20040421
  8. PRANDIN [Concomitant]
     Indication: DIABETES MELLITUS
     Route: 061
     Dates: start: 20040908
  9. ZETIA [Concomitant]
     Route: 048
  10. AUSTYN [Concomitant]
     Indication: HYPERSENSITIVITY
     Route: 055
     Dates: start: 20000418
  11. NASALCROM [Concomitant]
     Indication: HYPERSENSITIVITY
     Route: 055
     Dates: start: 20000418
  12. CLARITIN [Concomitant]
     Indication: BRONCHITIS
     Route: 048
  13. CLARITIN [Concomitant]
     Indication: PNEUMONIA
     Route: 048
  14. TRICOR [Concomitant]
     Route: 048
  15. ZOCOR [Concomitant]
     Indication: HYPERLIPIDAEMIA
     Route: 048
  16. IMDUR [Concomitant]
     Route: 048
  17. FOLIC ACID [Concomitant]
     Route: 048
  18. TOPROL-XL [Concomitant]
     Indication: HYPERTENSION
     Route: 048
  19. TRENTAL [Concomitant]
     Route: 048
  20. PROCARDIA XL [Concomitant]
     Indication: HYPERTENSION
     Route: 048
  21. PRILOSEC [Concomitant]
     Indication: GASTROOESOPHAGEAL REFLUX DISEASE
     Route: 048
  22. ASPIRIN [Concomitant]
     Route: 065
  23. AVELOX [Concomitant]
     Route: 048
  24. ERYTHROMYCIN [Concomitant]
     Indication: BRONCHITIS ACUTE
     Route: 048
     Dates: start: 20010925
  25. ERYTHROMYCIN [Concomitant]
     Indication: PNEUMONIA
     Route: 048
     Dates: start: 20010925
  26. HUMIBID DM [Concomitant]
     Indication: PNEUMONIA
     Route: 048
     Dates: start: 20010925
  27. LEVAQUIN [Concomitant]
     Indication: BRONCHITIS
     Route: 048
     Dates: start: 20020308
  28. LEVAQUIN [Concomitant]
     Indication: PNEUMONIA
     Route: 048
     Dates: start: 20020308
  29. FLONASE [Concomitant]
     Indication: RHINITIS ALLERGIC
     Route: 055
     Dates: start: 20020419
  30. DIFLUCAN [Concomitant]
     Route: 048
     Dates: start: 20021115
  31. SKELAXIN [Concomitant]
     Indication: MUSCLE STRAIN
     Route: 048
     Dates: start: 20030110
  32. GUAIFENESIN [Concomitant]
     Route: 048
  33. NEXIUM [Concomitant]
     Indication: GASTROOESOPHAGEAL REFLUX DISEASE
     Route: 048
     Dates: start: 20030325
  34. VIOXX [Suspect]
     Indication: ARTHRITIS
     Route: 048
     Dates: start: 20000501, end: 20040901
  35. AMITRIPTYLINE HYDROCHLORIDE [Concomitant]
     Indication: BACK INJURY
     Route: 048
     Dates: start: 19980513
  36. AMITRIPTYLINE HYDROCHLORIDE [Concomitant]
     Indication: MUSCLE SPASMS
     Route: 048
     Dates: start: 19980513
  37. LORTAB [Concomitant]
     Indication: BACK PAIN
     Route: 048
     Dates: start: 19980209
  38. VOLMAX [Concomitant]
     Indication: CHRONIC OBSTRUCTIVE PULMONARY DISEASE
     Route: 048
     Dates: start: 19980929
  39. PROVENTIL [Concomitant]
     Indication: CHRONIC OBSTRUCTIVE PULMONARY DISEASE
     Route: 055
     Dates: start: 19980929
  40. ZOVIRAX [Concomitant]
     Indication: HERPES ZOSTER
     Route: 048
     Dates: start: 19980118
  41. WELLBUTRIN SR [Concomitant]
     Route: 048
     Dates: start: 19990317
  42. DERMADEX [Concomitant]
     Route: 048
  43. ZAROXOLYN [Concomitant]
     Indication: OEDEMA PERIPHERAL
     Route: 048
     Dates: start: 19990608
  44. K-DUR 10 [Concomitant]
     Indication: BLOOD POTASSIUM DECREASED
     Route: 048
     Dates: start: 19990614
  45. ALDACTONE [Concomitant]
     Indication: HYPERTENSION
     Route: 048
     Dates: start: 19990630
  46. CEFZIL [Concomitant]
     Indication: BRONCHITIS
     Route: 048
     Dates: start: 19991013
  47. TUSSIONEX [Concomitant]
     Indication: BRONCHITIS
     Route: 048
     Dates: start: 20000209
  48. PLAVIX [Concomitant]
     Route: 048
  49. DIPYRIDAMOLE [Concomitant]
     Route: 065

REACTIONS (3)
  - CARDIAC DISORDER [None]
  - GASTROOESOPHAGEAL REFLUX DISEASE [None]
  - STENT PLACEMENT [None]
